FAERS Safety Report 11598081 (Version 1)
Quarter: 2015Q4

REPORT INFORMATION
  Report Type: Spontaneous
  Country: US (occurrence: US)
  Receive Date: 20151006
  Receipt Date: 20151006
  Transmission Date: 20160304
  Serious: No
  Sender: FDA-Public Use
  Company Number: US-ROCHE-1601843

PATIENT
  Sex: Female

DRUGS (5)
  1. NEXIUM [Concomitant]
     Active Substance: ESOMEPRAZOLE MAGNESIUM
     Dosage: NEXIUM 4 OZ
     Route: 048
     Dates: start: 20150618
  2. ERIVEDGE [Suspect]
     Active Substance: VISMODEGIB
     Indication: PRODUCT USED FOR UNKNOWN INDICATION
     Route: 048
     Dates: start: 20150605
  3. PHENYTOIN. [Concomitant]
     Active Substance: PHENYTOIN
     Route: 048
     Dates: start: 20150618
  4. NIACIN. [Concomitant]
     Active Substance: NIACIN
     Route: 048
     Dates: start: 20150527
  5. CRESTOR [Concomitant]
     Active Substance: ROSUVASTATIN CALCIUM
     Route: 048
     Dates: start: 20150210

REACTIONS (1)
  - Alopecia [Not Recovered/Not Resolved]
